FAERS Safety Report 17267345 (Version 1)
Quarter: 2020Q1

REPORT INFORMATION
  Report Type: Other
  Country: US (occurrence: US)
  Receive Date: 20200114
  Receipt Date: 20200114
  Transmission Date: 20200409
  Serious: Yes (Hospitalization, Other)
  Sender: FDA-Public Use
  Company Number: US-AMAG PHARMACEUTICALS, INC.-AMAG201905861

PATIENT
  Age: 31 Year
  Sex: Female
  Weight: 99.88 kg

DRUGS (1)
  1. MAKENA [Suspect]
     Active Substance: HYDROXYPROGESTERONE CAPROATE
     Indication: PREMATURE DELIVERY
     Route: 058
     Dates: start: 20190614, end: 20191101

REACTIONS (5)
  - Product administered at inappropriate site [Unknown]
  - Premature delivery [Recovered/Resolved]
  - Preterm premature rupture of membranes [Recovered/Resolved]
  - Injection site mass [Not Recovered/Not Resolved]
  - Placental calcification [Unknown]

NARRATIVE: CASE EVENT DATE: 2019
